FAERS Safety Report 23695397 (Version 4)
Quarter: 2024Q2

REPORT INFORMATION
  Report Type: Spontaneous
  Country: US (occurrence: US)
  Receive Date: 20240402
  Receipt Date: 20240506
  Transmission Date: 20240716
  Serious: Yes (Hospitalization, Other)
  Sender: FDA-Public Use
  Company Number: US-BRISTOL-MYERS SQUIBB COMPANY-2024-005211

PATIENT
  Age: 89 Year
  Sex: Female

DRUGS (2)
  1. LENALIDOMIDE [Suspect]
     Active Substance: LENALIDOMIDE
     Indication: Plasma cell myeloma
     Dosage: TAKE 1 CAPSULE BY MOUTH WHOLE W/ WATER, W/ OR W/O FOOD AT APPROXIMATELY THE SAME TIME ON DAYS 1-14 O
     Route: 048
  2. LENALIDOMIDE [Suspect]
     Active Substance: LENALIDOMIDE
     Dosage: TAKE 1 CAPSULE BY MOUTH WHOLE W/ WATER, W/ OR W/O FOOD AT APPROXIMATELY THE SAME TIME ON DAYS 1-14 O
     Route: 048

REACTIONS (6)
  - Dehydration [Not Recovered/Not Resolved]
  - Constipation [Not Recovered/Not Resolved]
  - Off label use [Unknown]
  - Dementia [Recovered/Resolved]
  - Malnutrition [Recovered/Resolved]
  - Rash [Not Recovered/Not Resolved]
